FAERS Safety Report 17518385 (Version 2)
Quarter: 2020Q2

REPORT INFORMATION
  Report Type: Spontaneous
  Country: US (occurrence: US)
  Receive Date: 20200310
  Receipt Date: 20200404
  Transmission Date: 20200713
  Serious: Yes (Other)
  Sender: FDA-Public Use
  Company Number: NVSC2020US064124

PATIENT
  Age: 71 Year
  Sex: Female

DRUGS (1)
  1. BEOVU [Suspect]
     Active Substance: BROLUCIZUMAB-DBLL
     Indication: NEOVASCULAR AGE-RELATED MACULAR DEGENERATION
     Dosage: 6 MG, ONCE/SINGLE
     Route: 047
     Dates: start: 20200210, end: 20200304

REACTIONS (3)
  - Vitritis [Unknown]
  - Visual acuity reduced [Unknown]
  - Non-infectious endophthalmitis [Unknown]

NARRATIVE: CASE EVENT DATE: 20200227
